FAERS Safety Report 18668503 (Version 1)
Quarter: 2020Q4

REPORT INFORMATION
  Report Type: Spontaneous
  Country: US (occurrence: US)
  Receive Date: 20201225
  Receipt Date: 20201225
  Transmission Date: 20210114
  Serious: Yes (Other)
  Sender: FDA-Public Use
  Company Number: None

PATIENT
  Age: 51 Year

DRUGS (1)
  1. SPRAVATO [Suspect]
     Active Substance: ESKETAMINE
     Dosage: ?          OTHER FREQUENCY:TWICE PER WEEK;?
     Dates: start: 20201112

REACTIONS (1)
  - Ankle operation [None]

NARRATIVE: CASE EVENT DATE: 20201224
